FAERS Safety Report 15706932 (Version 1)
Quarter: 2018Q4

REPORT INFORMATION
  Report Type: Spontaneous
  Country: US (occurrence: US)
  Receive Date: 20181210
  Receipt Date: 20181210
  Transmission Date: 20190205
  Serious: Yes (Other)
  Sender: FDA-Public Use
  Company Number: US-GLAXOSMITHKLINE-US2018216088

PATIENT
  Age: 38 Year
  Sex: Female

DRUGS (2)
  1. BENLYSTA [Suspect]
     Active Substance: BELIMUMAB
     Indication: PRODUCT USED FOR UNKNOWN INDICATION
     Dosage: UNK UNK, U
     Route: 058
  2. PREDNISONE. [Suspect]
     Active Substance: PREDNISONE
     Indication: PRODUCT USED FOR UNKNOWN INDICATION
     Dosage: UNK UNK, U

REACTIONS (14)
  - Injection site bruising [Unknown]
  - Injection site rash [Unknown]
  - Dyspnoea [Unknown]
  - Mental impairment [Unknown]
  - Palpitations [Unknown]
  - Energy increased [Unknown]
  - Affect lability [Unknown]
  - Myocardial infarction [Unknown]
  - Amnesia [Unknown]
  - Exposure via skin contact [Unknown]
  - Anxiety [Unknown]
  - Cardiac disorder [Unknown]
  - Stomatitis [Unknown]
  - Wrong technique in device usage process [Unknown]

NARRATIVE: CASE EVENT DATE: 201811
